FAERS Safety Report 7933148-5 (Version None)
Quarter: 2011Q4

REPORT INFORMATION
  Report Type: 
  Country: None (occurrence: None)
  Receive Date: 20111122
  Receipt Date: 20111116
  Transmission Date: 20120403
  Serious: Yes (Other)
  Sender: FDA-Public Use
  Company Number: US-SANOFI-AVENTIS-2011SA072116

PATIENT
  Age: 93 Year
  Sex: Female
  Weight: 71.66 kg

DRUGS (2)
  1. LANTUS [Suspect]
     Indication: TYPE 2 DIABETES MELLITUS
     Dosage: DOSE:18 UNIT(S)
     Route: 058
     Dates: start: 20070101
  2. SOLOSTAR [Suspect]
     Indication: TYPE 2 DIABETES MELLITUS
     Dates: start: 20070101

REACTIONS (5)
  - DRUG DOSE OMISSION [None]
  - PRODUCT QUALITY ISSUE [None]
  - MACULAR DEGENERATION [None]
  - VISUAL IMPAIRMENT [None]
  - BLOOD GLUCOSE INCREASED [None]
